FAERS Safety Report 6696400-X (Version None)
Quarter: 2010Q2

REPORT INFORMATION
  Report Type: 
  Country: None (occurrence: None)
  Receive Date: 20100426
  Receipt Date: 20100415
  Transmission Date: 20101027
  Serious: Yes (Hospitalization, Other)
  Sender: FDA-Public Use
  Company Number: US-ROCHE-694947

PATIENT
  Sex: Male

DRUGS (2)
  1. PEGINTERFERON ALFA-2A [Suspect]
     Indication: HEPATITIS C
     Dosage: FORM: PRE-FILLED SYRINGE,
     Route: 065
     Dates: start: 20100323, end: 20100406
  2. RIBAVIRIN [Suspect]
     Indication: HEPATITIS C
     Dosage: DIVIDED DOSES,
     Route: 065
     Dates: start: 20100323, end: 20100406

REACTIONS (4)
  - ASTHENIA [None]
  - BLOOD POTASSIUM INCREASED [None]
  - FATIGUE [None]
  - RENAL FAILURE [None]
